FAERS Safety Report 25295613 (Version 1)
Quarter: 2025Q2

REPORT INFORMATION
  Report Type: Spontaneous
  Country: US (occurrence: US)
  Receive Date: 20250511
  Receipt Date: 20250511
  Transmission Date: 20250716
  Serious: No
  Sender: SANOFI AVENTIS
  Company Number: US-SANOFI-02508380

PATIENT
  Age: 14 Year

DRUGS (1)
  1. CERDELGA [Suspect]
     Active Substance: ELIGLUSTAT
     Dosage: HALF A PILL IN THE MORNING AND THE OTHER HALF LATER THAT DAY
     Route: 065

REACTIONS (1)
  - Off label use [Unknown]
